FAERS Safety Report 15762983 (Version 7)
Quarter: 2019Q1

REPORT INFORMATION
  Report Type: Report from Study
  Country: US (occurrence: US)
  Receive Date: 20181226
  Receipt Date: 20190326
  Transmission Date: 20190417
  Serious: Yes (Hospitalization)
  Sender: FDA-Public Use
  Company Number: US-ACTELION-A-NJ2015-113411

PATIENT
  Age: 51 Year
  Sex: Female
  Weight: 64.85 kg

DRUGS (4)
  1. TRACLEER [Suspect]
     Active Substance: BOSENTAN
     Dosage: 125 MG, BID
     Route: 048
  2. TRACLEER [Suspect]
     Active Substance: BOSENTAN
     Indication: PULMONARY HYPERTENSION
     Dosage: 125 MG, BID
     Route: 048
     Dates: start: 20110516
  3. TRACLEER [Suspect]
     Active Substance: BOSENTAN
     Dosage: 125 MG, BID
     Route: 048
  4. ADCIRCA [Concomitant]
     Active Substance: TADALAFIL
     Dosage: 40 MG, QD
     Dates: start: 20161206

REACTIONS (18)
  - Dysstasia [Unknown]
  - Hypertension [Unknown]
  - Condition aggravated [Unknown]
  - Tachycardia [Unknown]
  - Lung disorder [Unknown]
  - Asthenia [Unknown]
  - Sleep apnoea syndrome [Unknown]
  - Pulmonary arterial hypertension [Unknown]
  - Heart rate increased [Unknown]
  - Dyspnoea [Unknown]
  - Catheter site pain [Unknown]
  - Pain in extremity [Unknown]
  - Dizziness [Unknown]
  - Orthopnoea [Unknown]
  - Nausea [Unknown]
  - Catheter site swelling [Unknown]
  - Fatigue [Unknown]
  - Loss of consciousness [Unknown]

NARRATIVE: CASE EVENT DATE: 20180614
